FAERS Safety Report 4338454-1 (Version None)
Quarter: 2004Q2

REPORT INFORMATION
  Report Type: 
  Country: None (occurrence: None)
  Receive Date: 20040409
  Receipt Date: 20040330
  Transmission Date: 20050107
  Serious: Yes (Death)
  Sender: FDA-Public Use
  Company Number: JP-JNJFOC-20040306788

PATIENT
  Age: 52 Year
  Sex: Female

DRUGS (13)
  1. DURAGESIC [Suspect]
     Indication: CANCER PAIN
     Dosage: 2.5 MG, 1 IN 3 DAY, TRANSDERMAL
     Route: 062
     Dates: start: 20040130, end: 20040219
  2. TPN [Concomitant]
  3. PANTHENOL [Concomitant]
  4. OXYCODONE HCL [Concomitant]
  5. FLURBIPROFEN AXETIL [Concomitant]
  6. HALOPERIDOL [Concomitant]
  7. FLUNITRAZEPAM [Concomitant]
  8. HYDROXYZINE HCL [Concomitant]
  9. DICLOFENAC SODIUM [Concomitant]
  10. MORPHINE HYDROCHLORIDE [Concomitant]
  11. CEFOTIAM HYDROCHLORIDE [Concomitant]
  12. PETHIDINE HYDROCHLORIDE [Concomitant]
  13. AMIKACIN SULFATE [Concomitant]

REACTIONS (5)
  - CONDITION AGGRAVATED [None]
  - INTESTINAL OBSTRUCTION [None]
  - NAUSEA [None]
  - PANCREATIC CARCINOMA [None]
  - VOMITING [None]
